FAERS Safety Report 23086242 (Version 1)
Quarter: 2023Q4

REPORT INFORMATION
  Report Type: Other
  Country: US (occurrence: None)
  Receive Date: 20231019
  Receipt Date: 20231019
  Transmission Date: 20240109
  Serious: Yes (Other)
  Sender: FDA-Public Use
  Company Number: US-ROCHE-3438583

PATIENT
  Age: 59 Year
  Sex: Male

DRUGS (1)
  1. OCREVUS [Suspect]
     Active Substance: OCRELIZUMAB
     Indication: Relapsing multiple sclerosis
     Dosage: INFUSE 300MG INTRAVENOUSLY ON WEEK(S) 0 AND WEEK(S)2 THEN INFUSE 600MG INTRAVENOUSLY?EVERY 6 MONTH(S
     Route: 042
     Dates: start: 20180419

REACTIONS (1)
  - Septic arthritis staphylococcal [Unknown]

NARRATIVE: CASE EVENT DATE: 20190101
